FAERS Safety Report 8967952 (Version 1)
Quarter: 2012Q4

REPORT INFORMATION
  Report Type: Report from Study
  Country: DE (occurrence: DE)
  Receive Date: 20121217
  Receipt Date: 20121217
  Transmission Date: 20130627
  Serious: Yes (Hospitalization)
  Sender: FDA-Public Use
  Company Number: DE-BAXTER-2012BAX026891

PATIENT
  Age: 67 Year
  Sex: Female
  Weight: 73 kg

DRUGS (5)
  1. ENDOXAN 1G [Suspect]
     Indication: NODULAR (FOLLICULAR) LYMPHOMA
     Route: 065
     Dates: start: 20090212
  2. RITUXIMAB [Suspect]
     Indication: NODULAR (FOLLICULAR) LYMPHOMA
     Route: 065
     Dates: start: 20090211
  3. DOXORUBICIN [Suspect]
     Indication: NODULAR (FOLLICULAR) LYMPHOMA
     Route: 065
     Dates: start: 20090212
  4. PREDNISONE [Suspect]
     Indication: NODULAR (FOLLICULAR) LYMPHOMA
     Route: 065
     Dates: start: 20090212
  5. VINCRISTINE [Suspect]
     Indication: NODULAR (FOLLICULAR) LYMPHOMA
     Route: 065
     Dates: start: 20090212

REACTIONS (2)
  - Abdominal pain [Recovered/Resolved]
  - Pancytopenia [Recovered/Resolved]
